FAERS Safety Report 7945539 (Version 4)
Quarter: 2014Q4

REPORT INFORMATION
  Report Type: Report from Study
  Country: MX (occurrence: MX)
  Receive Date: 20110516
  Receipt Date: 20141008
  Transmission Date: 20150529
  Serious: Yes (Death, Hospitalization, Other)
  Sender: FDA-Public Use
  Company Number: MX-BRISTOL-MYERS SQUIBB COMPANY-15736804

PATIENT
  Age: 66 Year
  Sex: Female

DRUGS (4)
  1. ABATACEPT [Suspect]
     Active Substance: ABATACEPT
     Indication: RHEUMATOID ARTHRITIS
     Route: 058
     Dates: start: 20090311, end: 20110503
  2. METHOTREXATE [Suspect]
     Active Substance: METHOTREXATE
     Dates: start: 200611, end: 20110509
  3. CAPTOPRIL. [Concomitant]
     Active Substance: CAPTOPRIL
     Dates: start: 2006, end: 20110523
  4. METFORMIN [Concomitant]
     Active Substance: METFORMIN HYDROCHLORIDE
     Dates: start: 2006, end: 20110517

REACTIONS (3)
  - Pulmonary tuberculosis [Fatal]
  - Lobar pneumonia [Fatal]
  - Anaemia [Not Recovered/Not Resolved]

NARRATIVE: CASE EVENT DATE: 20110510
